FAERS Safety Report 9423455 (Version 1)
Quarter: 2013Q3

REPORT INFORMATION
  Report Type: Spontaneous
  Country: US (occurrence: US)
  Receive Date: 20130726
  Receipt Date: 20130726
  Transmission Date: 20140515
  Serious: No
  Sender: FDA-Public Use
  Company Number: US-GALDERMA-US13000689

PATIENT
  Age: 44 Year
  Sex: Female

DRUGS (3)
  1. DIFFERIN (ADAPALENE) GEL, 0.3% [Suspect]
     Indication: ACNE
     Route: 061
     Dates: start: 201212, end: 201212
  2. AVEENO SENSITIVE SKIN CLEANSER [Concomitant]
     Indication: THERAPEUTIC SKIN CARE TOPICAL
     Route: 061
  3. PHILOSOPHY HOPE IN A JAR [Concomitant]
     Indication: DRY SKIN PROPHYLAXIS
     Route: 061

REACTIONS (7)
  - Scab [Recovered/Resolved]
  - Eczema [Recovered/Resolved]
  - Dermatitis [Recovered/Resolved]
  - Pruritus [Recovered/Resolved]
  - Rash [Recovered/Resolved]
  - Skin exfoliation [Recovered/Resolved]
  - Skin discolouration [Not Recovered/Not Resolved]
